FAERS Safety Report 6237150-3 (Version None)
Quarter: 2009Q2

REPORT INFORMATION
  Report Type: 
  Country: None (occurrence: None)
  Receive Date: 20090619
  Receipt Date: 20090430
  Transmission Date: 20091009
  Serious: No
  Sender: FDA-Public Use
  Company Number: US-ASTRAZENECA-2009UW11068

PATIENT
  Age: 73 Year
  Sex: Female
  Weight: 77.1 kg

DRUGS (4)
  1. SYMBICORT [Suspect]
     Indication: ASTHMA
     Route: 055
     Dates: start: 20090427
  2. ATENOLOL [Concomitant]
     Indication: HYPERTENSION
  3. ASPIRIN [Concomitant]
  4. FLONASE [Concomitant]

REACTIONS (5)
  - COUGH [None]
  - DRUG INEFFECTIVE [None]
  - FEELING JITTERY [None]
  - HEART RATE INCREASED [None]
  - NASAL CONGESTION [None]
